FAERS Safety Report 6134196-0 (Version None)
Quarter: 2009Q1

REPORT INFORMATION
  Report Type: 
  Country: None (occurrence: None)
  Receive Date: 20090325
  Receipt Date: 20090308
  Transmission Date: 20090719
  Serious: Yes (Other)
  Sender: FDA-Public Use
  Company Number: 2007S1008366

PATIENT
  Age: 72 Year
  Sex: Male
  Weight: 58.9676 kg

DRUGS (13)
  1. PHOSPHOSODA FLAVOR NOT SPECIFIED [Suspect]
     Indication: COLONOSCOPY
     Dosage: 90 ML; TOTAL; PO
     Route: 048
     Dates: start: 20051115, end: 20051115
  2. FLONASE [Concomitant]
  3. LIPITOR [Concomitant]
  4. METOPROLOL [Concomitant]
  5. ISOSORBIDE [Concomitant]
  6. ASPIRIN [Concomitant]
  7. ADVAIR HFA [Concomitant]
  8. ALBUTEROL [Concomitant]
  9. FLOMAX [Concomitant]
  10. SINGULAIR [Concomitant]
  11. LISINOPRIL [Concomitant]
  12. FOLIC ACID [Concomitant]
  13. INSULIN [Concomitant]

REACTIONS (9)
  - ANOREXIA [None]
  - HYPOGLYCAEMIA [None]
  - LOSS OF CONSCIOUSNESS [None]
  - NEPHROCALCINOSIS [None]
  - NEPHROPATHY [None]
  - RENAL FAILURE ACUTE [None]
  - RENAL FAILURE CHRONIC [None]
  - RENAL TUBULAR DISORDER [None]
  - TUBULOINTERSTITIAL NEPHRITIS [None]
